FAERS Safety Report 12942263 (Version 7)
Quarter: 2018Q3

REPORT INFORMATION
  Report Type: Spontaneous
  Country: FR (occurrence: FR)
  Receive Date: 20161114
  Receipt Date: 20180913
  Transmission Date: 20181010
  Serious: Yes (Hospitalization, Other)
  Sender: FDA-Public Use
  Company Number: FR-009507513-1607FRA005226

PATIENT
  Sex: Female
  Weight: 55 kg

DRUGS (1)
  1. NEXPLANON [Suspect]
     Active Substance: ETONOGESTREL
     Indication: CONTRACEPTION
     Dosage: 1 IMPLANT, UNK
     Dates: start: 20150408, end: 20180407

REACTIONS (11)
  - Arterial catheterisation [Recovered/Resolved]
  - Device deployment issue [Recovered/Resolved]
  - Arterial catheterisation [Recovered/Resolved]
  - Musculoskeletal chest pain [Unknown]
  - Device difficult to use [Recovered/Resolved]
  - Pulmonary infarction [Unknown]
  - Anxiety disorder [Unknown]
  - Device embolisation [Recovered/Resolved]
  - Complication associated with device [Recovered/Resolved]
  - Arterial thrombosis [Unknown]
  - Device difficult to use [Recovered/Resolved]

NARRATIVE: CASE EVENT DATE: 20150408
